FAERS Safety Report 11075348 (Version 1)
Quarter: 2015Q2

REPORT INFORMATION
  Report Type: Spontaneous
  Country: DE (occurrence: DE)
  Receive Date: 20150429
  Receipt Date: 20150429
  Transmission Date: 20150821
  Serious: Yes (Congenital Anomaly)
  Sender: FDA-Public Use
  Company Number: GXKR2015DE002189

PATIENT

DRUGS (4)
  1. SERTRALINE [Suspect]
     Active Substance: SERTRALINE HYDROCHLORIDE
     Indication: DEPRESSION
     Dosage: 200 MG, UNK
     Route: 048
     Dates: start: 201403
  2. QUETIAPINE [Suspect]
     Active Substance: QUETIAPINE
     Indication: DEPRESSION
     Dosage: 300 MG, UNK
     Route: 048
     Dates: start: 201403, end: 201409
  3. QUETIAPIN [Concomitant]
     Active Substance: QUETIAPINE
     Indication: SLEEP DISORDER
     Dosage: 50 MG, PRN
     Route: 048
     Dates: start: 201403, end: 20150311
  4. QUETIAPINE [Suspect]
     Active Substance: QUETIAPINE
     Dosage: DOSE REDUCED 200 MG --} 50 MG
     Route: 048
     Dates: start: 201410, end: 20150311

REACTIONS (1)
  - Limb reduction defect [Not Recovered/Not Resolved]
